FAERS Safety Report 23861291 (Version 3)
Quarter: 2024Q3

REPORT INFORMATION
  Report Type: Report from Study
  Country: US (occurrence: US)
  Receive Date: 20240516
  Receipt Date: 20240828
  Transmission Date: 20241016
  Serious: Yes (Hospitalization, Other)
  Sender: ABBVIE
  Company Number: US-ABBVIE-5760741

PATIENT
  Sex: Female

DRUGS (4)
  1. VENCLEXTA [Suspect]
     Active Substance: VENETOCLAX
     Indication: Acute myeloid leukaemia
     Dosage: FIRST ADMIN DATE: END OF APR 2024?STRENGTH:100MG
     Route: 048
     Dates: end: 20240702
  2. VENCLEXTA [Suspect]
     Active Substance: VENETOCLAX
     Indication: Acute myeloid leukaemia
     Dosage: DAY 1?FORM STRENGTH:100MG
     Route: 048
     Dates: start: 20240416, end: 20240416
  3. VENCLEXTA [Suspect]
     Active Substance: VENETOCLAX
     Indication: Acute myeloid leukaemia
     Dosage: DAY 2?FORM STRENGTH:100MG
     Route: 048
     Dates: start: 20240417, end: 20240417
  4. VENCLEXTA [Suspect]
     Active Substance: VENETOCLAX
     Indication: Acute myeloid leukaemia
     Dosage: FROM DAY 3?FORM STRENGTH:100MG?LAST ADMIN DATE: APR 2024
     Route: 048
     Dates: start: 20240418

REACTIONS (3)
  - Diverticulitis [Unknown]
  - Full blood count decreased [Unknown]
  - Constipation [Not Recovered/Not Resolved]

NARRATIVE: CASE EVENT DATE: 20240101
